FAERS Safety Report 6664240-3 (Version None)
Quarter: 2010Q2

REPORT INFORMATION
  Report Type: 
  Country: None (occurrence: None)
  Receive Date: 20100401
  Receipt Date: 20100322
  Transmission Date: 20101027
  Serious: Yes (Hospitalization)
  Sender: FDA-Public Use
  Company Number: PHHY2010IT18178

PATIENT
  Sex: Female

DRUGS (6)
  1. CLOZAPINE [Suspect]
     Indication: SCHIZOAFFECTIVE DISORDER
     Dosage: 325 MG/DAY
     Route: 048
     Dates: start: 20100202
  2. CLOZAPINE [Suspect]
     Dosage: 300 MG
     Route: 048
     Dates: start: 20100305
  3. CLOZAPINE [Suspect]
     Dosage: 225 MG/DAY
     Route: 048
  4. ZELDOX [Suspect]
     Indication: SCHIZOAFFECTIVE DISORDER
     Dosage: 60 MG
     Route: 048
  5. SURMONTIL [Suspect]
     Indication: SCHIZOAFFECTIVE DISORDER
     Dosage: 100 MG
     Route: 048
  6. SURMONTIL [Suspect]
     Dosage: 75 MG
     Route: 048

REACTIONS (2)
  - ELECTROENCEPHALOGRAM ABNORMAL [None]
  - EPILEPSY [None]
